FAERS Safety Report 15071382 (Version 1)
Quarter: 2018Q2

REPORT INFORMATION
  Report Type: Report from Study
  Country: US (occurrence: US)
  Receive Date: 20180626
  Receipt Date: 20180626
  Transmission Date: 20180711
  Serious: No
  Sender: FDA-Public Use
  Company Number: US-AMGEN-USASL2015098339

PATIENT
  Age: 72 Year
  Sex: Female

DRUGS (1)
  1. PROLIA [Suspect]
     Active Substance: DENOSUMAB
     Indication: PRODUCT USED FOR UNKNOWN INDICATION
     Dosage: UNK
     Route: 065
     Dates: start: 201409

REACTIONS (8)
  - Stomatitis [Unknown]
  - Skin disorder [Unknown]
  - Skin haemorrhage [Unknown]
  - Skin ulcer [Unknown]
  - Impaired healing [Unknown]
  - Lip exfoliation [Unknown]
  - Lower limb fracture [Not Recovered/Not Resolved]
  - Rash papular [Unknown]

NARRATIVE: CASE EVENT DATE: 2015
